FAERS Safety Report 7799633 (Version 2)
Quarter: 2012Q4

REPORT INFORMATION
  Report Type: Report from Study
  Country: US (occurrence: US)
  Receive Date: 20110204
  Receipt Date: 20121227
  Transmission Date: 20130627
  Serious: Yes (Life-Threatening, Hospitalization, Other)
  Sender: FDA-Public Use
  Company Number: US-ELI_LILLY_AND_COMPANY-US201101007601

PATIENT
  Age: 82 Year
  Sex: Male
  Weight: 93.88 kg

DRUGS (24)
  1. PRASUGREL HYDROCHLORIDE [Suspect]
     Indication: ACUTE CORONARY SYNDROME
     Dosage: 5 mg, qd
     Dates: start: 20100424, end: 20101224
  2. PRASUGREL HYDROCHLORIDE [Suspect]
     Dosage: 5 mg, qd
     Dates: start: 20101226, end: 20110123
  3. ASPIRIN [Concomitant]
     Indication: PROPHYLAXIS
     Dosage: 81 mg, qd
     Route: 048
     Dates: end: 20100420
  4. ASPIRIN [Concomitant]
     Dosage: 325 mg, single
     Dates: start: 20100423, end: 20100423
  5. ASPIRIN [Concomitant]
     Dosage: 81 mg, qd
     Dates: start: 20100425, end: 20110124
  6. ASPIRIN [Concomitant]
     Dosage: UNK
     Dates: start: 20110125
  7. LASIX [Concomitant]
     Indication: CARDIAC FAILURE CONGESTIVE
     Dosage: 40 mg, daily (1/D)
     Route: 048
  8. AMLODIPINE [Concomitant]
     Indication: HYPERTENSION
     Dosage: 10 mg, daily (1/D)
     Route: 048
  9. COZAAR [Concomitant]
     Indication: HYPERTENSION
     Dosage: 100 mg, daily (1/D)
     Route: 048
  10. SIMVASTATIN [Concomitant]
     Indication: HYPERLIPIDAEMIA
     Dosage: 40 mg, daily (1/D)
     Route: 048
  11. GLYBURIDE [Concomitant]
     Indication: DIABETES MELLITUS
     Dosage: 10 mg, daily (1/D)
     Route: 048
  12. JANUVIA [Concomitant]
     Indication: DIABETES MELLITUS
     Dosage: 50 mg, daily (1/D)
     Route: 048
  13. ALUMINUM CALCIUM MAGNESIUM SILICATE [Concomitant]
     Indication: PRODUCT USED FOR UNKNOWN INDICATION
  14. CEFEPIME [Concomitant]
     Indication: PRODUCT USED FOR UNKNOWN INDICATION
  15. INSULIN [Concomitant]
     Indication: PRODUCT USED FOR UNKNOWN INDICATION
  16. XOPENEX [Concomitant]
     Indication: PRODUCT USED FOR UNKNOWN INDICATION
  17. LEVOFLOXACIN [Concomitant]
     Indication: PRODUCT USED FOR UNKNOWN INDICATION
  18. SOLU-MEDROL [Concomitant]
     Indication: PRODUCT USED FOR UNKNOWN INDICATION
  19. PANTOPRAZOLE [Concomitant]
     Indication: PRODUCT USED FOR UNKNOWN INDICATION
  20. FLOMAX [Concomitant]
     Indication: PRODUCT USED FOR UNKNOWN INDICATION
  21. CENTRUM [Concomitant]
     Indication: SUPPLEMENTATION THERAPY
     Dosage: 1 mg, other
     Route: 048
  22. CINNAMON [Concomitant]
     Indication: SUPPLEMENTATION THERAPY
     Dosage: 250 mg, bid
     Route: 048
  23. MULTIVITAMIN [Concomitant]
     Indication: SUPPLEMENTATION THERAPY
     Dosage: 1 DF, qd
     Route: 048
  24. CORTICOSTEROIDS FOR SYSTEMIC USE [Concomitant]

REACTIONS (1)
  - Pleural effusion [Recovered/Resolved with Sequelae]
